FAERS Safety Report 25264095 (Version 1)
Quarter: 2025Q2

REPORT INFORMATION
  Report Type: Spontaneous
  Country: US (occurrence: None)
  Receive Date: 20250502
  Receipt Date: 20250502
  Transmission Date: 20250716
  Serious: Yes (unspecified)
  Sender: FDA-CTU
  Company Number: None

PATIENT
  Age: 45 Year
  Sex: Female
  Weight: 53.1 kg

DRUGS (2)
  1. MINOXIDIL\SPIRONOLACTONE\TRETINOIN [Suspect]
     Active Substance: MINOXIDIL\SPIRONOLACTONE\TRETINOIN
     Indication: Alopecia
     Dosage: OTHER QUANTITY : 6 TAPS;?FREQUENCY : DAILY;?
     Route: 061
     Dates: start: 20250118, end: 20250320
  2. MELATONIN [Concomitant]
     Active Substance: MELATONIN

REACTIONS (1)
  - Alopecia [None]

NARRATIVE: CASE EVENT DATE: 20250118
